FAERS Safety Report 8890854 (Version 1)
Quarter: 2012Q4

REPORT INFORMATION
  Report Type: 
  Country: US (occurrence: US)
  Receive Date: 20121106
  Receipt Date: 20121106
  Transmission Date: 20130627
  Serious: No
  Sender: FDA-Public Use
  Company Number: US-ELI_LILLY_AND_COMPANY-US201210009125

PATIENT
  Age: 41 Year
  Sex: Male

DRUGS (2)
  1. CYMBALTA [Suspect]
     Indication: DEPRESSION
     Dosage: 20 mg, bid
     Dates: start: 20100706
  2. CYMBALTA [Suspect]
     Dosage: 30 mg, qd

REACTIONS (2)
  - Hepatic enzyme increased [Unknown]
  - Intentional drug misuse [Unknown]
